FAERS Safety Report 20130811 (Version 1)
Quarter: 2021Q4

REPORT INFORMATION
  Report Type: Spontaneous
  Country: US (occurrence: US)
  Receive Date: 20211130
  Receipt Date: 20211130
  Transmission Date: 20220303
  Serious: No
  Sender: FDA-Public Use
  Company Number: US-PERRIGO-20US016520

PATIENT
  Age: 67 Year
  Sex: Female
  Weight: 64.399 kg

DRUGS (8)
  1. NICOTINE POLACRILEX [Suspect]
     Active Substance: NICOTINE
     Indication: Smoking cessation therapy
     Dosage: 4 MG, EVERY 1 TO 1.5 HOURS, UP TO 13 TIMES DAILY
     Route: 002
     Dates: start: 20200922, end: 20201112
  2. WELLBUTRIN [Concomitant]
     Active Substance: BUPROPION HYDROCHLORIDE
     Indication: Anxiety
     Dosage: UNK
     Route: 065
  3. DILTIAZEM [Concomitant]
     Active Substance: DILTIAZEM
     Indication: Cardiac disorder
     Dosage: UNK
     Route: 065
  4. PRANDIN                            /00882701/ [Concomitant]
     Indication: Diabetes mellitus
     Dosage: UNK
     Route: 065
  5. ACTOS [Concomitant]
     Active Substance: PIOGLITAZONE HYDROCHLORIDE
     Indication: Blood cholesterol increased
     Dosage: UNK
     Route: 065
  6. ASPIRIN                            /00002701/ [Concomitant]
     Indication: Routine health maintenance
     Dosage: UNK
     Route: 065
  7. LANTUS [Concomitant]
     Active Substance: INSULIN GLARGINE
     Indication: Diabetes mellitus
     Dosage: UNK
     Route: 065
  8. NOVOLOG [Concomitant]
     Active Substance: INSULIN ASPART
     Indication: Diabetes mellitus
     Dosage: UNK
     Route: 065

REACTIONS (4)
  - Stomatitis [Recovering/Resolving]
  - Oral discomfort [Recovering/Resolving]
  - Tongue blistering [Recovered/Resolved]
  - Oropharyngeal blistering [Recovered/Resolved]

NARRATIVE: CASE EVENT DATE: 20200929
